FAERS Safety Report 16679526 (Version 1)
Quarter: 2019Q3

REPORT INFORMATION
  Report Type: Spontaneous
  Country: CI (occurrence: CI)
  Receive Date: 20190807
  Receipt Date: 20190807
  Transmission Date: 20191004
  Serious: Yes (Death)
  Sender: FDA-Public Use
  Company Number: PHHY2019CI183688

PATIENT
  Sex: Female

DRUGS (1)
  1. GLIVEC [Suspect]
     Active Substance: IMATINIB MESYLATE
     Indication: CHRONIC MYELOID LEUKAEMIA
     Dosage: 8 DF, UNK
     Route: 065

REACTIONS (4)
  - Drug ineffective [Fatal]
  - Acute myeloid leukaemia [Fatal]
  - Anaemia [Fatal]
  - Chronic myeloid leukaemia transformation [Fatal]
